FAERS Safety Report 11758670 (Version 1)
Quarter: 2015Q4

REPORT INFORMATION
  Report Type: Spontaneous
  Country: US (occurrence: None)
  Receive Date: 20151119
  Receipt Date: 20151119
  Transmission Date: 20160304
  Serious: Yes (Disabling)
  Sender: FDA-Public Use
  Company Number: None

PATIENT
  Age: 75 Year
  Sex: Female
  Weight: 56.25 kg

DRUGS (18)
  1. LEVOTHYROXINE. [Concomitant]
     Active Substance: LEVOTHYROXINE
  2. COLESTIPAL [Concomitant]
  3. D400 [Concomitant]
  4. PATADAY [Concomitant]
     Active Substance: OLOPATADINE HYDROCHLORIDE
  5. VITAMIN B12 [Concomitant]
     Active Substance: CYANOCOBALAMIN
  6. ONDANSETRON [Concomitant]
     Active Substance: ONDANSETRON
  7. IPRATROPIUM [Concomitant]
     Active Substance: IPRATROPIUM
  8. ACETAMINOPHEN. [Concomitant]
     Active Substance: ACETAMINOPHEN
  9. ATENOLOL. [Concomitant]
     Active Substance: ATENOLOL
  10. OXYCODONE [Concomitant]
     Active Substance: OXYCODONE
  11. BELSOMRA [Suspect]
     Active Substance: SUVOREXANT
     Indication: INSOMNIA
     Dosage: ONCE AT BEDTIME
     Route: 048
     Dates: start: 20151103, end: 20151104
  12. ADVAIR DISK [Concomitant]
  13. PANTOPRAZOLE [Concomitant]
     Active Substance: PANTOPRAZOLE SODIUM
  14. DONNATAL [Concomitant]
     Active Substance: ATROPINE SULFATE\HYOSCYAMINE SULFATE\PHENOBARBITAL\SCOPOLAMINE HYDROBROMIDE
  15. ECOTRIN [Concomitant]
     Active Substance: ASPIRIN
  16. DISOPYRAMIDE [Concomitant]
     Active Substance: DISOPYRAMIDE
  17. CELEBREX [Concomitant]
     Active Substance: CELECOXIB
  18. PROBIOTICS [Concomitant]
     Active Substance: PROBIOTICS NOS

REACTIONS (2)
  - Nightmare [None]
  - Pharyngeal oedema [None]

NARRATIVE: CASE EVENT DATE: 20151103
